FAERS Safety Report 23865469 (Version 4)
Quarter: 2024Q4

REPORT INFORMATION
  Report Type: Report from Study
  Country: CA (occurrence: CA)
  Receive Date: 20240517
  Receipt Date: 20241004
  Transmission Date: 20250115
  Serious: Yes (Other)
  Sender: JOHNSON AND JOHNSON
  Company Number: CA-JNJFOC-20240133400

PATIENT
  Age: 53 Year
  Sex: Female

DRUGS (7)
  1. REMICADE [Suspect]
     Active Substance: INFLIXIMAB
     Indication: Hidradenitis
     Route: 041
     Dates: start: 20230309
  2. REMICADE [Suspect]
     Active Substance: INFLIXIMAB
     Dosage: EXPIRY : SEP-2026
     Route: 041
  3. REMICADE [Suspect]
     Active Substance: INFLIXIMAB
     Dosage: EXPIRATION DATE : -DEC-2026
     Route: 041
     Dates: start: 20230309
  4. FLUOXETINE [Concomitant]
     Active Substance: FLUOXETINE HYDROCHLORIDE
     Route: 065
  5. ERGOCALCIFEROL [Concomitant]
     Active Substance: ERGOCALCIFEROL
     Route: 065
  6. BIOTIN [Concomitant]
     Active Substance: BIOTIN
  7. ESTROGENS [Concomitant]
     Active Substance: ESTROGENS

REACTIONS (5)
  - Hidradenitis [Not Recovered/Not Resolved]
  - Streptococcal infection [Recovered/Resolved]
  - Rash [Not Recovered/Not Resolved]
  - Eczema [Not Recovered/Not Resolved]
  - Haemochromatosis [Unknown]

NARRATIVE: CASE EVENT DATE: 20240301
